FAERS Safety Report 23830039 (Version 1)
Quarter: 2024Q2

REPORT INFORMATION
  Report Type: Report from Study
  Country: FR (occurrence: FR)
  Receive Date: 20240508
  Receipt Date: 20240508
  Transmission Date: 20240716
  Serious: Yes (Other)
  Sender: FDA-Public Use
  Company Number: FR-CELLTRION INC.-2024FR010450

PATIENT

DRUGS (1)
  1. RITUXIMAB [Suspect]
     Active Substance: RITUXIMAB
     Indication: Neuromyelitis optica spectrum disorder
     Dosage: 1000 MG ONCE TO TWICE A YEAR
     Dates: start: 2012

REACTIONS (3)
  - Tooth infection [Recovered/Resolved with Sequelae]
  - Dental cyst [Recovered/Resolved with Sequelae]
  - Off label use [Unknown]
